FAERS Safety Report 8025887-5 (Version None)
Quarter: 2012Q1

REPORT INFORMATION
  Report Type: 
  Country: None (occurrence: None)
  Receive Date: 20120105
  Receipt Date: 20111230
  Transmission Date: 20120608
  Serious: Yes (Other)
  Sender: FDA-Public Use
  Company Number: US-ASTRAZENECA-2012SE00337

PATIENT
  Sex: Male

DRUGS (2)
  1. NEXIUM [Suspect]
     Dosage: TWICE A DAY
     Route: 048
  2. NEXIUM [Suspect]
     Dosage: ONE A DAY
     Route: 048

REACTIONS (4)
  - DRUG EFFECT DECREASED [None]
  - OESOPHAGEAL HAEMORRHAGE [None]
  - INAPPROPRIATE SCHEDULE OF DRUG ADMINISTRATION [None]
  - OESOPHAGEAL DILATATION [None]
